FAERS Safety Report 10261627 (Version 4)
Quarter: 2014Q3

REPORT INFORMATION
  Report Type: Spontaneous
  Country: US (occurrence: US)
  Receive Date: 20140626
  Receipt Date: 20140925
  Transmission Date: 20150326
  Serious: Yes (Death, Other)
  Sender: FDA-Public Use
  Company Number: US-PFIZER INC-2014175640

PATIENT
  Age: 32 Year
  Sex: Female
  Weight: 47.62 kg

DRUGS (16)
  1. GABAPENTIN. [Concomitant]
     Active Substance: GABAPENTIN
     Indication: NEURALGIA
     Dosage: 600 MG, UNK
  2. VALIUM [Concomitant]
     Active Substance: DIAZEPAM
     Indication: INSOMNIA
  3. XANAX [Concomitant]
     Active Substance: ALPRAZOLAM
     Indication: PANIC DISORDER
     Dosage: 2 MG, UNK
  4. XANAX [Concomitant]
     Active Substance: ALPRAZOLAM
     Indication: ANXIETY DISORDER
  5. DESIPRAMINE [Concomitant]
     Active Substance: DESIPRAMINE
     Indication: DEPRESSION
     Dosage: 10 MG, UNK
  6. VALIUM [Concomitant]
     Active Substance: DIAZEPAM
     Indication: CONVULSION
  7. LYRICA [Suspect]
     Active Substance: PREGABALIN
     Indication: NEURALGIA
     Dosage: 150 MG, UNK
  8. DESIPRAMINE [Concomitant]
     Active Substance: DESIPRAMINE
     Indication: NEURALGIA
  9. LYRICA [Suspect]
     Active Substance: PREGABALIN
     Indication: COMPLEX REGIONAL PAIN SYNDROME
     Dosage: UNK
     Dates: start: 201306, end: 20130720
  10. NORTRIPTYLINE [Concomitant]
     Active Substance: NORTRIPTYLINE
     Indication: DEPRESSION
     Dosage: 50 MG, UNK
  11. VALIUM [Concomitant]
     Active Substance: DIAZEPAM
     Indication: ANXIETY
     Dosage: 5 MG, UNK
  12. VALIUM [Concomitant]
     Active Substance: DIAZEPAM
     Indication: MUSCLE SPASMS
  13. HYDROCODONE [Concomitant]
     Active Substance: HYDROCODONE
     Indication: PAIN
     Dosage: 500 MG, UNK
  14. PERCOCET [Concomitant]
     Active Substance: ACETAMINOPHEN\OXYCODONE HYDROCHLORIDE
     Indication: PAIN
     Dosage: 325 MG, UNK
  15. NORTRIPTYLINE [Concomitant]
     Active Substance: NORTRIPTYLINE
     Indication: PAIN
  16. VALIUM [Concomitant]
     Active Substance: DIAZEPAM
     Indication: PANIC ATTACK

REACTIONS (4)
  - Overdose [Fatal]
  - Drug withdrawal syndrome [Unknown]
  - Drug effect incomplete [Unknown]
  - Completed suicide [Fatal]

NARRATIVE: CASE EVENT DATE: 20130729
